FAERS Safety Report 7445253-0 (Version None)
Quarter: 2011Q2

REPORT INFORMATION
  Report Type: 
  Country: None (occurrence: None)
  Receive Date: 20110429
  Receipt Date: 20110426
  Transmission Date: 20111010
  Serious: Yes (Hospitalization)
  Sender: FDA-Public Use
  Company Number: US-PFIZER INC-2011031616

PATIENT
  Sex: Female
  Weight: 91 kg

DRUGS (34)
  1. CHANTIX [Suspect]
     Indication: SMOKING CESSATION THERAPY
     Dosage: 1 MG, 1X/DAY
     Route: 048
     Dates: start: 20100101
  2. CHANTIX [Suspect]
     Dosage: UNK
     Route: 048
     Dates: start: 20110223
  3. PRILOSEC [Concomitant]
     Indication: ULCER
     Dosage: 40 MG, UNK
  4. LUMIGAN [Concomitant]
     Indication: GLAUCOMA
     Dosage: 1 GTT, 1X/DAY
     Route: 047
  5. VERAPAMIL [Concomitant]
     Indication: CARDIOMYOPATHY
     Dosage: 120 MG, 1X/DAY
  6. LYRICA [Concomitant]
     Indication: FIBROMYALGIA
     Dosage: 100 MG, 1X/DAY
     Route: 048
  7. PREDNISONE [Concomitant]
     Indication: SINUSITIS
     Dosage: 40 MG, UNK
     Dates: start: 20110303, end: 20110304
  8. PREDNISONE [Concomitant]
     Indication: INFLAMMATION
  9. MONTELUKAST SODIUM [Concomitant]
     Dosage: 10 MG, 1X/DAY
  10. DILAUDID [Concomitant]
     Indication: PAIN
     Dosage: 4 MG, 1X/DAY
  11. VOLTAREN [Concomitant]
     Indication: INFLAMMATION
     Dosage: UNK
     Route: 061
  12. DOXEPIN [Concomitant]
     Indication: PRURITUS
     Dosage: 50MG IN THE MORNING AND 100 MG AT NIGHT
  13. ALBUTEROL SULFATE [Concomitant]
     Indication: ASTHMA
     Dosage: UNK
  14. SPIRONOLACTONE [Concomitant]
     Indication: CARDIOMYOPATHY
     Dosage: 25 MG, 1X/DAY
  15. CYMBALTA [Concomitant]
     Indication: FIBROMYALGIA
     Dosage: 60 MG, 2X/DAY
     Route: 048
  16. POTASSIUM [Concomitant]
     Dosage: 8 MEQ, 1X/DAY
  17. SIMVASTATIN [Concomitant]
     Indication: BLOOD CHOLESTEROL ABNORMAL
     Dosage: 40 MG, 1X/DAY
  18. VICODIN [Concomitant]
     Indication: PAIN
     Dosage: 5/500 MG ONE TO TWO TABLETS EVERY 4-6 HOURS DAILY
     Route: 048
  19. MORPHINE [Concomitant]
     Indication: PAIN
     Dosage: 30 MG, 2X/DAY
  20. LASIX [Concomitant]
     Dosage: 40 MG, 1X/DAY
     Route: 048
  21. SEROQUEL [Concomitant]
     Indication: SLEEP DISORDER
     Dosage: 100 MG, 1X/DAY
     Route: 048
  22. RESTORIL [Concomitant]
     Dosage: 50 MG, AS NEEDED
     Route: 048
  23. BUDESONIDE [Concomitant]
     Indication: ASTHMA
     Dosage: UNK
  24. CHANTIX [Suspect]
     Dosage: 0.5 MG, 1X/DAY
     Route: 048
     Dates: start: 20110204, end: 20110201
  25. NICOTINE [Concomitant]
     Dosage: 40 MG, UNK
  26. IMITREX [Concomitant]
     Dosage: 100 MG, AS NEEDED
     Route: 048
  27. ADVAIR DISKUS 100/50 [Concomitant]
     Indication: ASTHMA
     Dosage: UNK
  28. PREDNISONE [Concomitant]
     Indication: VIRAL INFECTION
  29. VALIUM [Concomitant]
     Indication: SLEEP DISORDER
     Dosage: 10 MG, 3X/DAY
     Route: 048
  30. CELEXA [Concomitant]
     Dosage: 20 MG, 1X/DAY
     Route: 048
  31. REGLAN [Concomitant]
     Dosage: 10 MG, AS NEEDED
     Route: 048
  32. DIAZEPAM [Concomitant]
     Indication: SLEEP DISORDER
  33. METAXALONE [Concomitant]
     Indication: MUSCLE SPASMS
     Dosage: 800 MG, 2X/DAY
  34. MS CONTIN [Concomitant]
     Indication: PAIN
     Dosage: 60 MG, 1X/DAY

REACTIONS (2)
  - BLINDNESS TRANSIENT [None]
  - LOSS OF CONSCIOUSNESS [None]
